FAERS Safety Report 7535489-2 (Version None)
Quarter: 2011Q2

REPORT INFORMATION
  Report Type: 
  Country: None (occurrence: None)
  Receive Date: 20110601
  Receipt Date: 20110525
  Transmission Date: 20111010
  Serious: Yes (Other)
  Sender: FDA-Public Use
  Company Number: 2011SP024136

PATIENT
  Age: 20 Year
  Sex: Female

DRUGS (1)
  1. CERAZETTE (DESOGESTREL /00754001/) [Suspect]
     Indication: CONTRACEPTION
     Dates: start: 20101001

REACTIONS (4)
  - CONDITION AGGRAVATED [None]
  - AMENORRHOEA [None]
  - COLITIS COLLAGENOUS [None]
  - GENERAL PHYSICAL HEALTH DETERIORATION [None]
